FAERS Safety Report 6756924-3 (Version None)
Quarter: 2010Q2

REPORT INFORMATION
  Report Type: 
  Country: None (occurrence: None)
  Receive Date: 20100603
  Receipt Date: 20100603
  Transmission Date: 20101027
  Serious: No
  Sender: FDA-Public Use
  Company Number: None

PATIENT
  Age: 64 Year
  Sex: Male
  Weight: 76.77 kg

DRUGS (2)
  1. HYDROMORPHONE HCL [Suspect]
     Indication: PAIN
     Dosage: 2 MG PRN PO
     Route: 048
     Dates: start: 20091229, end: 20100102
  2. OXYCODONE HCL [Suspect]
     Indication: PAIN
     Dosage: 10 MG PRN PO
     Route: 048
     Dates: start: 20091229

REACTIONS (4)
  - BRADYCARDIA [None]
  - HYPOTENSION [None]
  - MENTAL STATUS CHANGES [None]
  - RESPIRATORY DEPRESSION [None]
